FAERS Safety Report 8025503-2 (Version None)
Quarter: 2012Q1

REPORT INFORMATION
  Report Type: 
  Country: None (occurrence: None)
  Receive Date: 20120105
  Receipt Date: 20120103
  Transmission Date: 20120608
  Serious: No
  Sender: FDA-Public Use
  Company Number: US-PFIZER INC-2011299941

PATIENT
  Sex: Male

DRUGS (1)
  1. NICOTROL [Suspect]
     Indication: SMOKING CESSATION THERAPY
     Dosage: 6-16 PUFFS, A DAY
     Route: 048
     Dates: start: 20100801

REACTIONS (2)
  - MEDICATION ERROR [None]
  - DRUG INEFFECTIVE [None]
